FAERS Safety Report 13855207 (Version 2)
Quarter: 2017Q3

REPORT INFORMATION
  Report Type: Spontaneous
  Country: FR (occurrence: FR)
  Receive Date: 20170810
  Receipt Date: 20170907
  Transmission Date: 20171127
  Serious: Yes (Hospitalization)
  Sender: FDA-Public Use
  Company Number: FR-INCYTE CORPORATION-2017IN006696

PATIENT

DRUGS (4)
  1. VIDAZA [Suspect]
     Active Substance: AZACITIDINE
     Indication: MYELOFIBROSIS
     Dosage: 111.75 MG, QD (2 X 7 DAYS PER MONTH)
     Route: 058
     Dates: start: 20170424, end: 20170531
  2. VIDAZA [Suspect]
     Active Substance: AZACITIDINE
     Dosage: SEOND CYCLE OF REGIMEN
     Route: 058
     Dates: start: 20170522
  3. JAKAVI [Suspect]
     Active Substance: RUXOLITINIB
     Indication: MYELOFIBROSIS
     Dosage: 15 MG, BID
     Route: 048
     Dates: start: 201611, end: 20170530
  4. JAKAVI [Suspect]
     Active Substance: RUXOLITINIB
     Dosage: 5 MG, QD
     Route: 048
     Dates: start: 20170612

REACTIONS (1)
  - Skin necrosis [Recovered/Resolved]

NARRATIVE: CASE EVENT DATE: 20170529
